FAERS Safety Report 8382974-X (Version None)
Quarter: 2012Q1

REPORT INFORMATION
  Report Type: 
  Country: None (occurrence: None)
  Receive Date: 20120323
  Receipt Date: 20110511
  Transmission Date: 20120608
  Serious: Yes (Other)
  Sender: FDA-Public Use
  Company Number: 163-21880-11051467

PATIENT
  Age: 68 Year
  Sex: Male
  Weight: 91.6266 kg

DRUGS (7)
  1. REVLIMID [Suspect]
     Indication: MULTIPLE MYELOMA
     Dosage: 15 MG, QD FOR 21 DAYS, PO ; 5 MG, QD FOR 21 DAYS, PO
     Route: 048
     Dates: start: 20100801, end: 20110101
  2. REVLIMID [Suspect]
     Indication: MULTIPLE MYELOMA
     Dosage: 15 MG, QD FOR 21 DAYS, PO ; 5 MG, QD FOR 21 DAYS, PO
     Route: 048
     Dates: start: 20110101
  3. MIRTAZAPINE [Concomitant]
  4. FLECAINIDE ACETATE [Concomitant]
  5. ASPIRIN [Concomitant]
  6. METOPROLOL TARTRATE [Concomitant]
  7. LORAZEPAM [Concomitant]

REACTIONS (1)
  - PANCYTOPENIA [None]
